FAERS Safety Report 4327484-1 (Version None)
Quarter: 2004Q1

REPORT INFORMATION
  Report Type: 
  Country: None (occurrence: None)
  Receive Date: 20040330
  Receipt Date: 20040330
  Transmission Date: 20041129
  Serious: Yes (Other)
  Sender: FDA-Public Use
  Company Number: None

PATIENT
  Age: 76 Year
  Sex: Male
  Weight: 69.8539 kg

DRUGS (1)
  1. PRIMAXIN [Suspect]
     Dosage: 250 Q 6 X 8

REACTIONS (1)
  - CONVULSION [None]
